FAERS Safety Report 22593604 (Version 6)
Quarter: 2024Q1

REPORT INFORMATION
  Report Type: Spontaneous
  Country: JP (occurrence: JP)
  Receive Date: 20230613
  Receipt Date: 20240115
  Transmission Date: 20240409
  Serious: Yes (Other)
  Sender: FDA-Public Use
  Company Number: JP-BRISTOL-MYERS SQUIBB COMPANY-2023-081625

PATIENT
  Age: 49 Year
  Sex: Female

DRUGS (10)
  1. YERVOY [Suspect]
     Active Substance: IPILIMUMAB
     Indication: Malignant melanoma
     Route: 041
  2. OPDIVO [Suspect]
     Active Substance: NIVOLUMAB
     Indication: Malignant melanoma
     Route: 041
  3. OPDIVO [Suspect]
     Active Substance: NIVOLUMAB
     Route: 041
  4. OPDIVO [Suspect]
     Active Substance: NIVOLUMAB
     Route: 041
  5. TRAMETINIB [Concomitant]
     Active Substance: TRAMETINIB
     Indication: Malignant melanoma
  6. DABRAFENIB MESYLATE [Concomitant]
     Active Substance: DABRAFENIB MESYLATE
     Indication: Malignant melanoma
  7. BINIMETINIB [Concomitant]
     Active Substance: BINIMETINIB
     Indication: Malignant melanoma
  8. BINIMETINIB [Concomitant]
     Active Substance: BINIMETINIB
  9. ENCORAFENIB [Concomitant]
     Active Substance: ENCORAFENIB
     Indication: Malignant melanoma
  10. ENCORAFENIB [Concomitant]
     Active Substance: ENCORAFENIB

REACTIONS (8)
  - Liver disorder [Unknown]
  - Colitis [Unknown]
  - Serous retinal detachment [Unknown]
  - Uveitis [Unknown]
  - Pyrexia [Unknown]
  - Diarrhoea [Unknown]
  - Vision blurred [Unknown]
  - Visual field defect [Unknown]
